FAERS Safety Report 20060876 (Version 2)
Quarter: 2021Q4

REPORT INFORMATION
  Report Type: Report from Study
  Country: US (occurrence: US)
  Receive Date: 20211112
  Receipt Date: 20211230
  Transmission Date: 20220303
  Serious: Yes (Death, Other)
  Sender: FDA-Public Use
  Company Number: US-ACADIA PHARMACEUTICALS INC.-ACA-2021-PIM-003907

PATIENT
  Age: 88 Year
  Sex: Male

DRUGS (14)
  1. NUPLAZID [Suspect]
     Active Substance: PIMAVANSERIN TARTRATE
     Indication: Parkinson^s disease
     Dosage: 34 MILLIGRAM, QD
     Route: 048
     Dates: start: 20190131, end: 2021
  2. HUMALOG HD KWIKPEN [Concomitant]
     Dosage: U-100
  3. TERIPARATIDE [Concomitant]
     Active Substance: TERIPARATIDE
  4. LANTUS [Concomitant]
     Active Substance: INSULIN GLARGINE
     Dosage: SOLOSTAR
  5. METFORMIN HYDROCHLORIDE [Concomitant]
     Active Substance: METFORMIN HYDROCHLORIDE
     Dosage: 500 MILLIGRAM
  6. MIRTAZAPINE [Concomitant]
     Active Substance: MIRTAZAPINE
  7. ROTIGOTINE [Concomitant]
     Active Substance: ROTIGOTINE
  8. INSULIN NOS [Concomitant]
     Active Substance: INSULIN NOS
  9. NEXIUM I.V. [Concomitant]
     Active Substance: ESOMEPRAZOLE SODIUM
  10. METOPROLOL [Concomitant]
     Active Substance: METOPROLOL
  11. RIVASTIGMINE [Concomitant]
     Active Substance: RIVASTIGMINE
  12. MONTELUKAST [Concomitant]
     Active Substance: MONTELUKAST SODIUM
  13. TAMSULOSIN [Concomitant]
     Active Substance: TAMSULOSIN
  14. SINEMET [Concomitant]
     Active Substance: CARBIDOPA\LEVODOPA

REACTIONS (4)
  - Parkinson^s disease [Recovered/Resolved]
  - Urinary tract infection [Recovered/Resolved]
  - Fractured sacrum [Recovered/Resolved]
  - Fall [Recovered/Resolved]

NARRATIVE: CASE EVENT DATE: 20211007
